FAERS Safety Report 18107451 (Version 1)
Quarter: 2020Q3

REPORT INFORMATION
  Report Type: Spontaneous
  Country: US (occurrence: US)
  Receive Date: 20200804
  Receipt Date: 20200804
  Transmission Date: 20201103
  Serious: No
  Sender: FDA-Public Use
  Company Number: US-MYLANLABS-2020M1068886

PATIENT
  Sex: Female
  Weight: 113 kg

DRUGS (3)
  1. OTEZLA [Concomitant]
     Active Substance: APREMILAST
     Indication: ECZEMA
     Dosage: UNK
  2. OTEZLA [Concomitant]
     Active Substance: APREMILAST
     Indication: PSORIASIS
  3. ESTRADIOL. [Suspect]
     Active Substance: ESTRADIOL
     Indication: PRODUCT USED FOR UNKNOWN INDICATION
     Dosage: UNK(I WAS AT A HIGHER DOSE WHEN I FIRST STARTED AND LOWERED IT DOWN OVER TIME)
     Route: 062
     Dates: start: 2008

REACTIONS (7)
  - Application site erythema [Unknown]
  - Eczema [Unknown]
  - Product adhesion issue [Unknown]
  - Application site rash [Unknown]
  - Application site urticaria [Unknown]
  - Application site pain [Unknown]
  - Psoriasis [Unknown]
